FAERS Safety Report 5820991-1 (Version None)
Quarter: 2008Q3

REPORT INFORMATION
  Report Type: 
  Country: None (occurrence: None)
  Receive Date: 20080724
  Receipt Date: 20080715
  Transmission Date: 20090109
  Serious: Yes (Death)
  Sender: FDA-Public Use
  Company Number: BR-NOVOPROD-272065

PATIENT
  Age: 6 Month
  Weight: 4 kg

DRUGS (6)
  1. NOVOSEVEN [Suspect]
     Indication: SURGERY
     Dosage: 90 UG/KG, UNK
     Route: 042
     Dates: start: 20080208, end: 20080208
  2. FUROSEMIDE [Concomitant]
     Indication: CARDIAC FAILURE CONGESTIVE
  3. MIDAZOLAM HCL [Concomitant]
     Indication: INDUCTION OF ANAESTHESIA
  4. SUFENTANIL CITRATE [Concomitant]
     Indication: INDUCTION OF ANAESTHESIA
  5. PANCURONIUM [Concomitant]
     Indication: INDUCTION OF ANAESTHESIA
  6. SEVOFLURANE [Concomitant]
     Indication: INDUCTION OF ANAESTHESIA
     Dosage: 0.5 MAC

REACTIONS (1)
  - VENTRICULAR FAILURE [None]
